FAERS Safety Report 9340429 (Version 1)
Quarter: 2013Q2

REPORT INFORMATION
  Report Type: Spontaneous
  Country: US (occurrence: None)
  Receive Date: 20130610
  Receipt Date: 20130610
  Transmission Date: 20140414
  Serious: Yes (Other)
  Sender: FDA-Public Use
  Company Number: None

PATIENT
  Age: 67 Year
  Sex: Female
  Weight: 72.58 kg

DRUGS (1)
  1. SPIRONOLACTONE [Suspect]
     Dates: start: 201302, end: 20130422

REACTIONS (2)
  - Blood pressure decreased [None]
  - Drug effect increased [None]
